FAERS Safety Report 7098686-9 (Version None)
Quarter: 2010Q4

REPORT INFORMATION
  Report Type: 
  Country: None (occurrence: None)
  Receive Date: 20101112
  Receipt Date: 20080320
  Transmission Date: 20110411
  Serious: No
  Sender: FDA-Public Use
  Company Number: US-KINGPHARMUSA00001-K200800348

PATIENT

DRUGS (1)
  1. CORGARD [Suspect]

REACTIONS (1)
  - DRUG INEFFECTIVE [None]
